FAERS Safety Report 15707624 (Version 1)
Quarter: 2018Q4

REPORT INFORMATION
  Report Type: Spontaneous
  Country: US (occurrence: US)
  Receive Date: 20181211
  Receipt Date: 20181211
  Transmission Date: 20190205
  Serious: Yes (Other)
  Sender: FDA-Public Use
  Company Number: US-TEVA-2018-US-986553

PATIENT
  Age: 66 Year
  Sex: Male

DRUGS (1)
  1. GEMCITABINE [Suspect]
     Active Substance: GEMCITABINE\GEMCITABINE HYDROCHLORIDE
     Indication: PANCREATIC CARCINOMA
     Dosage: 9 DOSES (18000MG)
     Route: 065

REACTIONS (4)
  - Platelet count decreased [Recovering/Resolving]
  - Atypical haemolytic uraemic syndrome [Recovered/Resolved]
  - Renal failure [Recovered/Resolved]
  - Hypertension [Unknown]
